FAERS Safety Report 11238279 (Version 1)
Quarter: 2015Q3

REPORT INFORMATION
  Report Type: Spontaneous
  Country: IT (occurrence: IT)
  Receive Date: 20150704
  Receipt Date: 20150704
  Transmission Date: 20151125
  Serious: Yes (Hospitalization)
  Sender: FDA-Public Use
  Company Number: IT-009507513-1507ITA000593

PATIENT
  Age: 17 Year
  Sex: Female

DRUGS (1)
  1. SECURGIN [Suspect]
     Active Substance: DESOGESTREL\ETHINYL ESTRADIOL
     Indication: CONTRACEPTION
     Dosage: 1 TABLET DAILY
     Route: 048
     Dates: start: 20130401, end: 20141001

REACTIONS (3)
  - Deep vein thrombosis [Recovering/Resolving]
  - Cerebellar infarction [Recovering/Resolving]
  - Migraine with aura [Recovering/Resolving]
